FAERS Safety Report 5956204-X (Version None)
Quarter: 2008Q4

REPORT INFORMATION
  Report Type: 
  Country: None (occurrence: None)
  Receive Date: 20081112
  Receipt Date: 20081106
  Transmission Date: 20090506
  Serious: Yes (Other)
  Sender: FDA-Public Use
  Company Number: 1000001072

PATIENT
  Age: 68 Year
  Sex: Male
  Weight: 68.0396 kg

DRUGS (18)
  1. CELEXA [Suspect]
     Indication: ANXIETY
     Dosage: 40 MG (40 MG, 1 IN 1 D), ORAL
     Route: 048
     Dates: start: 20080801, end: 20080909
  2. CELEXA [Suspect]
     Indication: DEPRESSION
     Dosage: 40 MG (40 MG, 1 IN 1 D), ORAL
     Route: 048
     Dates: start: 20080801, end: 20080909
  3. CELEXA [Suspect]
     Indication: ANXIETY
     Dosage: 20 MG (20 MG, 1 IN 1 D),ORAL; 40 MG (40 MG, 1 IN 1 D),ORAL
     Route: 048
     Dates: start: 20080910, end: 20080101
  4. CELEXA [Suspect]
     Indication: DEPRESSION
     Dosage: 20 MG (20 MG, 1 IN 1 D),ORAL; 40 MG (40 MG, 1 IN 1 D),ORAL
     Route: 048
     Dates: start: 20080910, end: 20080101
  5. CELEXA [Suspect]
     Indication: ANXIETY
     Dosage: 20 MG (20 MG, 1 IN 1 D),ORAL; 40 MG (40 MG, 1 IN 1 D),ORAL
     Route: 048
     Dates: start: 20080601, end: 20080801
  6. CELEXA [Suspect]
     Indication: DEPRESSION
     Dosage: 20 MG (20 MG, 1 IN 1 D),ORAL; 40 MG (40 MG, 1 IN 1 D),ORAL
     Route: 048
     Dates: start: 20080601, end: 20080801
  7. CELEXA [Suspect]
     Indication: ANXIETY
     Dosage: 20 MG (20 MG, 1 IN 1 D),ORAL; 40 MG (40 MG, 1 IN 1 D),ORAL
     Route: 048
     Dates: start: 20080101
  8. CELEXA [Suspect]
     Indication: DEPRESSION
     Dosage: 20 MG (20 MG, 1 IN 1 D),ORAL; 40 MG (40 MG, 1 IN 1 D),ORAL
     Route: 048
     Dates: start: 20080101
  9. AVANDIA [Suspect]
     Indication: TYPE 2 DIABETES MELLITUS
     Dates: end: 20080901
  10. GLYBURIDE [Suspect]
     Indication: TYPE 2 DIABETES MELLITUS
     Dates: end: 20080901
  11. AVANDIA [Suspect]
     Indication: TYPE 2 DIABETES MELLITUS
     Dates: start: 20080901
  12. GLYBURIDE [Suspect]
     Indication: TYPE 2 DIABETES MELLITUS
     Dosage: (1 DOSAGE FORMS)
     Dates: start: 20080901
  13. GLUCOPHAGE [Concomitant]
  14. TRENTAL [Concomitant]
  15. ASPIRIN [Concomitant]
  16. EZETIMIBE [Concomitant]
  17. LISINOPRIL [Concomitant]
  18. VALIUM [Concomitant]

REACTIONS (1)
  - HYPOGLYCAEMIA [None]
